FAERS Safety Report 16284735 (Version 1)
Quarter: 2019Q2

REPORT INFORMATION
  Report Type: Spontaneous
  Country: US (occurrence: US)
  Receive Date: 20190508
  Receipt Date: 20190508
  Transmission Date: 20190711
  Serious: No
  Sender: FDA-Public Use
  Company Number: US-AUROBINDO-AUR-APU-2018-058302

PATIENT

DRUGS (1)
  1. VALSARTAN+HYDROCHLOROTHIAZIDE 160/25MG [Suspect]
     Active Substance: HYDROCHLOROTHIAZIDE\VALSARTAN
     Indication: PRODUCT USED FOR UNKNOWN INDICATION
     Dosage: UNK ONCE DAY
     Route: 065

REACTIONS (1)
  - Dyspnoea [Unknown]
